FAERS Safety Report 8979815 (Version 1)
Quarter: 2012Q4

REPORT INFORMATION
  Report Type: 
  Country: DE (occurrence: DE)
  Receive Date: 20121221
  Receipt Date: 20121221
  Transmission Date: 20130627
  Serious: Yes (Other)
  Sender: FDA-Public Use
  Company Number: GXKR2012DE003891

PATIENT
  Age: 86 Year
  Sex: Female

DRUGS (3)
  1. CARBAMAZEPINE [Suspect]
     Route: 048
  2. NALOXONE HYDROCHLORIDE\TILIDINE HYDROCHLORIDE [Interacting]
     Indication: NEURALGIA
     Route: 065
  3. MARCUMAR [Interacting]
     Dosage: UNK
     Route: 048

REACTIONS (2)
  - International normalised ratio increased [Not Recovered/Not Resolved]
  - Drug interaction [Not Recovered/Not Resolved]
